FAERS Safety Report 18828096 (Version 1)
Quarter: 2021Q1

REPORT INFORMATION
  Report Type: Spontaneous
  Country: US (occurrence: US)
  Receive Date: 20210201
  Receipt Date: 20210201
  Transmission Date: 20210419
  Serious: No
  Sender: FDA-Public Use
  Company Number: US-ABBVIE-20K-163-3513162-00

PATIENT
  Age: 11 Year
  Sex: Female

DRUGS (5)
  1. NAPROXEN. [Concomitant]
     Active Substance: NAPROXEN
     Indication: PRODUCT USED FOR UNKNOWN INDICATION
  2. LEFLUNOMIDE. [Concomitant]
     Active Substance: LEFLUNOMIDE
     Indication: PRODUCT USED FOR UNKNOWN INDICATION
  3. PREDNISONE. [Concomitant]
     Active Substance: PREDNISONE
     Indication: PRODUCT USED FOR UNKNOWN INDICATION
  4. HUMIRA [Suspect]
     Active Substance: ADALIMUMAB
     Indication: JUVENILE IDIOPATHIC ARTHRITIS
     Dosage: CITRATE
     Route: 058
  5. INFLECTRA [Concomitant]
     Active Substance: INFLIXIMAB-DYYB
     Indication: PRODUCT USED FOR UNKNOWN INDICATION

REACTIONS (14)
  - Infusion [Unknown]
  - Irritability [Unknown]
  - Inflammation [Unknown]
  - Therapeutic product effect incomplete [Unknown]
  - Joint fluid drainage [Unknown]
  - Arthritis [Unknown]
  - Influenza [Unknown]
  - Injection site pain [Unknown]
  - Arthralgia [Unknown]
  - Pain [Unknown]
  - Alopecia [Unknown]
  - Joint range of motion decreased [Unknown]
  - Asthma [Unknown]
  - Migraine [Unknown]
